FAERS Safety Report 13721613 (Version 1)
Quarter: 2017Q3

REPORT INFORMATION
  Report Type: Spontaneous
  Country: FR (occurrence: FR)
  Receive Date: 20170706
  Receipt Date: 20170706
  Transmission Date: 20171127
  Serious: Yes (Hospitalization)
  Sender: FDA-Public Use
  Company Number: FR-ASTRAZENECA-2017SE68178

PATIENT
  Age: 29827 Day
  Sex: Male

DRUGS (16)
  1. AMLOR [Concomitant]
     Active Substance: AMLODIPINE BESYLATE
     Dosage: AT LEAST SINCE JUL-2016
  2. OXEOL [Concomitant]
     Active Substance: BAMBUTEROL HYDROCHLORIDE
     Dosage: AT LEAST SINCE JUL-2016
  3. AUGMENTIN [Suspect]
     Active Substance: AMOXICILLIN\CLAVULANATE POTASSIUM
     Indication: BRONCHITIS
     Dosage: 250 MG, THEN 1 G THREE TIMES DAILY
     Route: 048
     Dates: start: 20170509, end: 20170517
  4. PREVISCAN [Suspect]
     Active Substance: FLUINDIONE
     Route: 048
     Dates: start: 201705, end: 20170615
  5. CETRIZINE [Concomitant]
     Active Substance: CETIRIZINE HYDROCHLORIDE
     Dosage: AT LEAST SINCE JUL-2016
  6. HYTACAND [Suspect]
     Active Substance: CANDESARTAN CILEXETIL\HYDROCHLOROTHIAZIDE
     Indication: HYPERTENSION
     Dosage: 8/12.5 MG, DAILY
     Route: 048
     Dates: start: 20170404, end: 20170509
  7. INSPRA [Concomitant]
     Active Substance: EPLERENONE
     Dosage: AT LEAST SINCE JUL-2016
  8. KAYEXALATE [Concomitant]
     Active Substance: SODIUM POLYSTYRENE SULFONATE
     Dosage: AT LEAST SINCE JUL-2016
  9. PARACETAMOL [Concomitant]
     Active Substance: ACETAMINOPHEN
     Dosage: AT LEAST SINCE JUL-2016
  10. JOSIR [Concomitant]
     Active Substance: TAMSULOSIN
     Dosage: AT LEAST SINCE JUL-2016
  11. ZOLPIDEM [Concomitant]
     Active Substance: ZOLPIDEM\ZOLPIDEM TARTRATE
     Dosage: AT LEAST SINCE JUL-2016
  12. CORTANCYL [Suspect]
     Active Substance: PREDNISONE
     Indication: CHRONIC OBSTRUCTIVE PULMONARY DISEASE
     Dosage: 20 MG THEN 17 MG DAILY
     Route: 048
     Dates: start: 201701, end: 20170622
  13. LASILIX [Concomitant]
     Active Substance: FUROSEMIDE
     Dosage: AT LEAST SINCE JUL-2016
  14. ATACAND [Suspect]
     Active Substance: CANDESARTAN CILEXETIL
     Indication: HYPERTENSION
     Route: 048
     Dates: start: 20170509, end: 20170614
  15. TAHOR [Concomitant]
     Active Substance: ATORVASTATIN CALCIUM
     Dosage: AT LEAST SINCE JUL-2016
  16. PANTOPRAZOLE [Concomitant]
     Active Substance: PANTOPRAZOLE
     Dosage: AT LEAST SINCE JUL-2016

REACTIONS (1)
  - Drug reaction with eosinophilia and systemic symptoms [Recovering/Resolving]

NARRATIVE: CASE EVENT DATE: 20170519
